FAERS Safety Report 5900313-8 (Version None)
Quarter: 2008Q3

REPORT INFORMATION
  Report Type: 
  Country: None (occurrence: None)
  Receive Date: 20080926
  Receipt Date: 20080918
  Transmission Date: 20090109
  Serious: Yes (Other)
  Sender: FDA-Public Use
  Company Number: US-ELI_LILLY_AND_COMPANY-US200809005688

PATIENT
  Sex: Female

DRUGS (2)
  1. HUMALOG [Suspect]
     Dosage: UNK, UNK
     Dates: start: 19430101
  2. HUMULIN N [Suspect]

REACTIONS (7)
  - CATARACT [None]
  - CORNEAL DISORDER [None]
  - LYMPHOMA [None]
  - MASS [None]
  - PAROTIDECTOMY [None]
  - RASH MACULAR [None]
  - TRANSPLANT FAILURE [None]
